FAERS Safety Report 5012715-5 (Version None)
Quarter: 2006Q2

REPORT INFORMATION
  Report Type: 
  Country: None (occurrence: None)
  Receive Date: 20060524
  Receipt Date: 20060517
  Transmission Date: 20061013
  Serious: Yes (Hospitalization)
  Sender: FDA-Public Use
  Company Number: 2006035014

PATIENT
  Sex: Female

DRUGS (1)
  1. ZELDOX (CAPSULES) (ZIPRASIDONE) [Suspect]
     Indication: PSYCHOTIC DISORDER
     Dosage: ORAL
     Route: 048

REACTIONS (2)
  - PSYCHOTIC DISORDER [None]
  - SINUS ARRHYTHMIA [None]
